FAERS Safety Report 10220020 (Version 1)
Quarter: 2014Q2

REPORT INFORMATION
  Report Type: Spontaneous
  Country: US (occurrence: US)
  Receive Date: 20140605
  Receipt Date: 20140605
  Transmission Date: 20141212
  Serious: Yes (Death, Other)
  Sender: FDA-Public Use
  Company Number: US-BAXTER-2014BAX027572

PATIENT
  Age: 59 Year
  Sex: Female

DRUGS (4)
  1. VANCOMYCIN INJECTION, USP [Suspect]
     Indication: PRODUCT USED FOR UNKNOWN INDICATION
     Route: 065
  2. CEFEPIME INJECTION [Suspect]
     Indication: PRODUCT USED FOR UNKNOWN INDICATION
     Route: 065
  3. LORAZEPAM [Suspect]
     Indication: SEDATION
     Route: 065
  4. LORAZEPAM [Suspect]
     Dosage: BY POD 6
     Route: 065

REACTIONS (3)
  - Peritonitis bacterial [Fatal]
  - Acute respiratory distress syndrome [Unknown]
  - Renal failure acute [Unknown]
